FAERS Safety Report 5339476-4 (Version None)
Quarter: 2007Q2

REPORT INFORMATION
  Report Type: 
  Country: None (occurrence: None)
  Receive Date: 20070525
  Receipt Date: 20070511
  Transmission Date: 20071010
  Serious: Yes (Other)
  Sender: FDA-Public Use
  Company Number: 2007JP001962

PATIENT
  Age: 87 Year
  Sex: Male

DRUGS (9)
  1. VESICARE [Suspect]
     Dosage: 5 MG, UID/QD, ORAL
     Route: 048
     Dates: start: 20070301, end: 20070430
  2. GASTER D ORODISPERSABLE CR [Concomitant]
  3. NORVASC [Concomitant]
  4. MAGLAX (MAGNESIUM OXIDE) [Concomitant]
  5. LAC B (LACTOBACILLUS BIFIDUS, LYOPHILIZED) FINE GRANULE [Concomitant]
  6. MIYA-BM (CLOSTRIDIUM BUTYRICUM) [Concomitant]
  7. HALCION [Concomitant]
  8. DIGOXIN [Concomitant]
  9. MUCOSAL [Concomitant]

REACTIONS (1)
  - DEMENTIA [None]
